FAERS Safety Report 21108436 (Version 2)
Quarter: 2022Q3

REPORT INFORMATION
  Report Type: Report from Study
  Country: NZ (occurrence: NZ)
  Receive Date: 20220721
  Receipt Date: 20220802
  Transmission Date: 20221027
  Serious: Yes (Other)
  Sender: FDA-Public Use
  Company Number: NZ-ABBVIE-22K-118-4475321-00

PATIENT
  Age: 69 Year
  Sex: Male

DRUGS (1)
  1. VENETOCLAX [Suspect]
     Active Substance: VENETOCLAX
     Indication: Waldenstrom^s macroglobulinaemia refractory
     Route: 048
     Dates: start: 20201029

REACTIONS (3)
  - Waldenstrom^s macroglobulinaemia refractory [Unknown]
  - Chronic kidney disease [Unknown]
  - Monoclonal immunoglobulin present [Unknown]

NARRATIVE: CASE EVENT DATE: 20220426
